FAERS Safety Report 9769325 (Version 3)
Quarter: 2014Q2

REPORT INFORMATION
  Report Type: Spontaneous
  Country: US (occurrence: US)
  Receive Date: 20131218
  Receipt Date: 20140620
  Transmission Date: 20141212
  Serious: Yes (Hospitalization, Other)
  Sender: FDA-Public Use
  Company Number: US-009507513-2010SP040278

PATIENT
  Sex: Female
  Weight: 83.92 kg

DRUGS (2)
  1. NUVARING [Suspect]
     Indication: CONTRACEPTION
     Dosage: UNK
     Route: 067
     Dates: start: 20050120, end: 20061127
  2. ASPIRIN [Concomitant]
     Dates: start: 20061125

REACTIONS (5)
  - Hypercoagulation [Unknown]
  - Deep vein thrombosis [Recovering/Resolving]
  - Pulmonary embolism [Unknown]
  - Emotional disorder [Unknown]
  - Chills [Unknown]
